FAERS Safety Report 7190059-3 (Version None)
Quarter: 2010Q4

REPORT INFORMATION
  Report Type: 
  Country: None (occurrence: None)
  Receive Date: 20101210
  Receipt Date: 20101201
  Transmission Date: 20110411
  Serious: Yes (Other)
  Sender: FDA-Public Use
  Company Number: 2010US004968

PATIENT
  Age: 59 Year
  Sex: Male

DRUGS (3)
  1. AMBISOME [Suspect]
     Indication: MUCORMYCOSIS
     Dosage: 5 MG/KG, /D, IV NOS; 1 MG/KG, /D, IV NOS; 10 MG/KG, /D, IV NOS
     Route: 042
  2. CO AMOXICLAV (AMOXICILLIN TRIHYDRATE, CLAVULANATE POTSSIUM) [Concomitant]
  3. HYPOGLYCEMICS [Concomitant]

REACTIONS (2)
  - ALANINE AMINOTRANSFERASE INCREASED [None]
  - DEAFNESS NEUROSENSORY [None]
